FAERS Safety Report 9097521 (Version 1)
Quarter: 2013Q1

REPORT INFORMATION
  Report Type: Spontaneous
  Country: US (occurrence: US)
  Receive Date: 20130212
  Receipt Date: 20130212
  Transmission Date: 20140127
  Serious: Yes (Hospitalization, Other)
  Sender: FDA-Public Use
  Company Number: US-009507513-1302USA003910

PATIENT
  Sex: Male

DRUGS (1)
  1. RIBAVIRIN [Suspect]
     Indication: HEPATITIS C
     Dosage: UNK
     Dates: start: 20080201, end: 20080523

REACTIONS (5)
  - Bipolar disorder [Unknown]
  - Mental disorder [Unknown]
  - Confusional state [Unknown]
  - Hallucination [Unknown]
  - Injury [Unknown]
